FAERS Safety Report 17842579 (Version 2)
Quarter: 2020Q4

REPORT INFORMATION
  Report Type: Report from Study
  Country: IT (occurrence: IT)
  Receive Date: 20200529
  Receipt Date: 20201015
  Transmission Date: 20210113
  Serious: Yes (Other)
  Sender: FDA-Public Use
  Company Number: NVSC2020IT147927

PATIENT
  Age: 70 Year
  Sex: Male

DRUGS (1)
  1. DABRAFENIB,TRAMETINIB [Suspect]
     Active Substance: DABRAFENIB\TRAMETINIB
     Indication: PRODUCT USED FOR UNKNOWN INDICATION
     Dosage: UNK
     Route: 065
     Dates: start: 201901

REACTIONS (2)
  - Disease progression [Unknown]
  - Dry skin [Unknown]
